FAERS Safety Report 16171166 (Version 3)
Quarter: 2019Q2

REPORT INFORMATION
  Report Type: Spontaneous
  Country: US (occurrence: US)
  Receive Date: 20190408
  Receipt Date: 20190528
  Transmission Date: 20190711
  Serious: Yes (Other)
  Sender: FDA-Public Use
  Company Number: US-BAYER-2019-062334

PATIENT
  Age: 27 Year
  Sex: Female

DRUGS (6)
  1. MIRENA [Suspect]
     Active Substance: LEVONORGESTREL
     Dosage: 20 MCG/24HR, CONT
     Route: 015
     Dates: start: 2016, end: 201612
  2. SKYLA [Suspect]
     Active Substance: LEVONORGESTREL
     Dosage: UNK
  3. SKYLA [Suspect]
     Active Substance: LEVONORGESTREL
     Dosage: 14 MCG/24HR, CONT
     Route: 015
     Dates: start: 201801, end: 201812
  4. MIRENA [Suspect]
     Active Substance: LEVONORGESTREL
     Dosage: 20 MCG/24HR, CONT
     Route: 015
     Dates: start: 2018, end: 20190228
  5. MIRENA [Suspect]
     Active Substance: LEVONORGESTREL
  6. KYLEENA [Suspect]
     Active Substance: LEVONORGESTREL
     Dosage: 17.5 MCG/24HR, CONT
     Route: 015
     Dates: start: 20190228

REACTIONS (13)
  - Pelvic pain [None]
  - Endothelial dysfunction [None]
  - Pelvic pain [Recovering/Resolving]
  - Device expulsion [None]
  - Flank pain [None]
  - Ovulation pain [Not Recovered/Not Resolved]
  - Post procedural haemorrhage [Recovered/Resolved]
  - Dysmenorrhoea [Not Recovered/Not Resolved]
  - Menorrhagia [None]
  - Abdominal pain lower [None]
  - Dyspareunia [None]
  - Dyschezia [None]
  - Chest pain [Not Recovered/Not Resolved]

NARRATIVE: CASE EVENT DATE: 20190228
